FAERS Safety Report 21912680 (Version 1)
Quarter: 2023Q1

REPORT INFORMATION
  Report Type: Spontaneous
  Country: US (occurrence: US)
  Receive Date: 20230125
  Receipt Date: 20230125
  Transmission Date: 20230418
  Serious: No
  Sender: FDA-Public Use
  Company Number: US-ALLERGAN-2236395US

PATIENT
  Sex: Female

DRUGS (3)
  1. BOTOX [Suspect]
     Active Substance: ONABOTULINUMTOXINA
     Indication: Migraine
     Dosage: UNK, SINGLE
     Dates: start: 20221006, end: 20221006
  2. JUVEDERM [Suspect]
     Active Substance: HYALURONIC ACID
     Indication: Skin wrinkling
     Dosage: UNK
     Dates: start: 20221006
  3. JUVEDERM [Suspect]
     Active Substance: HYALURONIC ACID
     Indication: Migraine

REACTIONS (3)
  - Vision blurred [Not Recovered/Not Resolved]
  - Head discomfort [Not Recovered/Not Resolved]
  - Muscle atrophy [Not Recovered/Not Resolved]

NARRATIVE: CASE EVENT DATE: 20221001
